FAERS Safety Report 20011807 (Version 2)
Quarter: 2021Q4

REPORT INFORMATION
  Report Type: Report from Study
  Country: AR (occurrence: None)
  Receive Date: 20211029
  Receipt Date: 20211224
  Transmission Date: 20220303
  Serious: Yes (Other)
  Sender: FDA-Public Use
  Company Number: AR-MERCK HEALTHCARE KGAA-9275284

PATIENT
  Sex: Male

DRUGS (2)
  1. REBIF [Suspect]
     Active Substance: INTERFERON BETA-1A
     Indication: Multiple sclerosis
     Route: 058
     Dates: start: 20161018
  2. REBIF [Suspect]
     Active Substance: INTERFERON BETA-1A
     Dosage: LOWERED DOSE TO ONE TIME A WEEK
     Route: 058

REACTIONS (2)
  - Stent placement [Unknown]
  - Off label use [Unknown]
